FAERS Safety Report 20647614 (Version 1)
Quarter: 2022Q1

REPORT INFORMATION
  Report Type: Spontaneous
  Country: GB (occurrence: GB)
  Receive Date: 20220329
  Receipt Date: 20220329
  Transmission Date: 20220423
  Serious: Yes (Death, Life-Threatening, Other)
  Sender: FDA-Public Use
  Company Number: None

PATIENT
  Age: 63 Year
  Sex: Male

DRUGS (2)
  1. CISPLATIN [Suspect]
     Active Substance: CISPLATIN
     Indication: Lung adenocarcinoma
  2. VINORELBINE [Suspect]
     Active Substance: VINORELBINE TARTRATE
     Indication: Lung adenocarcinoma

REACTIONS (12)
  - Colitis [Unknown]
  - Telangiectasia [Fatal]
  - Abdominal distension [Unknown]
  - Abdominal pain [Unknown]
  - Faeces discoloured [Unknown]
  - Blood pressure decreased [Unknown]
  - Constipation [Unknown]
  - Diarrhoea [Unknown]
  - Gastrointestinal necrosis [Unknown]
  - Inflammation [Unknown]
  - Ulcer [Unknown]
  - Vomiting [Unknown]
